FAERS Safety Report 12472578 (Version 1)
Quarter: 2016Q2

REPORT INFORMATION
  Report Type: Report from Study
  Country: LV (occurrence: LV)
  Receive Date: 20160616
  Receipt Date: 20160616
  Transmission Date: 20160815
  Serious: Yes (Life-Threatening, Hospitalization, Other)
  Sender: FDA-Public Use
  Company Number: PHHO2011LV020578

PATIENT
  Age: 29 Year
  Sex: Male
  Weight: 78 kg

DRUGS (1)
  1. AIN457 [Suspect]
     Active Substance: SECUKINUMAB
     Indication: PSORIASIS
     Route: 058
     Dates: start: 20110803, end: 20111121

REACTIONS (8)
  - Colitis ulcerative [Recovering/Resolving]
  - Lymphadenopathy [Unknown]
  - Hypoproteinaemia [Unknown]
  - Haemorrhagic anaemia [Recovering/Resolving]
  - Gastroenteritis [Recovering/Resolving]
  - Electrolyte imbalance [Recovering/Resolving]
  - Hypoalbuminaemia [Recovering/Resolving]
  - Chronic gastritis [Recovering/Resolving]

NARRATIVE: CASE EVENT DATE: 20111207
